FAERS Safety Report 12958950 (Version 1)
Quarter: 2016Q4

REPORT INFORMATION
  Report Type: Spontaneous
  Country: US (occurrence: US)
  Receive Date: 20161117
  Receipt Date: 20161117
  Transmission Date: 20170207
  Serious: Yes (Hospitalization)
  Sender: FDA-Public Use
  Company Number: None

PATIENT
  Age: 59 Year
  Sex: Female

DRUGS (8)
  1. METOPOLOL TARTRATE [Concomitant]
  2. ATORVASATIN [Concomitant]
  3. PACLITAXEL. [Suspect]
     Active Substance: PACLITAXEL
     Indication: NEOPLASM MALIGNANT
     Route: 042
     Dates: start: 20160902
  4. ASPIRIN. [Concomitant]
     Active Substance: ASPIRIN
  5. CALCIUM CARBONATE/VITAMIN D [Concomitant]
     Active Substance: CALCIUM CARBONATE\VITAMIN D
  6. LEVOTHYROXINE. [Concomitant]
     Active Substance: LEVOTHYROXINE
  7. FERROUS SULFATE. [Concomitant]
     Active Substance: FERROUS SULFATE
  8. TRAMADOL. [Concomitant]
     Active Substance: TRAMADOL

REACTIONS (10)
  - Back pain [None]
  - Dizziness [None]
  - Unresponsive to stimuli [None]
  - Flushing [None]
  - Hypotension [None]
  - Abdominal pain [None]
  - Infusion related reaction [None]
  - Oxygen saturation decreased [None]
  - Nausea [None]
  - Pulse abnormal [None]

NARRATIVE: CASE EVENT DATE: 20160902
